FAERS Safety Report 13130731 (Version 2)
Quarter: 2017Q1

REPORT INFORMATION
  Report Type: Spontaneous
  Country: IT (occurrence: IT)
  Receive Date: 20170119
  Receipt Date: 20170123
  Transmission Date: 20170428
  Serious: Yes (Death)
  Sender: FDA-Public Use
  Company Number: IT-SA-2017SA008482

PATIENT
  Age: 83 Year
  Sex: Male

DRUGS (11)
  1. FUROSEMIDE. [Concomitant]
     Active Substance: FUROSEMIDE
     Dosage: 500 MG STREGTH
  2. EPOETIN ALFA [Concomitant]
     Active Substance: ERYTHROPOIETIN
     Dosage: 5000 UI/0,5 ML INJECTABLE SOLUTION-SC AND IV USE
  3. OMNIC [Concomitant]
     Active Substance: TAMSULOSIN HYDROCHLORIDE
     Dosage: 0.4 MG
  4. ISOPTIN [Concomitant]
     Active Substance: VERAPAMIL HYDROCHLORIDE
     Dosage: STRENGTH:120 MG
  5. PANTORC [Concomitant]
     Active Substance: PANTOPRAZOLE SODIUM
     Dosage: STRENGTH: 20 MG
  6. COUMADIN [Concomitant]
     Active Substance: WARFARIN SODIUM
     Dosage: STRENGTH:5 MG
  7. ALLOPURINOL. [Concomitant]
     Active Substance: ALLOPURINOL
     Dosage: 300 MG
  8. LANTUS [Suspect]
     Active Substance: INSULIN GLARGINE
     Indication: TYPE 2 DIABETES MELLITUS
     Route: 058
     Dates: start: 20170107, end: 20170107
  9. TORVAST [Concomitant]
     Active Substance: ATORVASTATIN
     Dosage: STRENGTH: 20 MG
  10. ROCALTROL [Concomitant]
     Active Substance: CALCITRIOL
     Dosage: STRENGTH: 0.25 MG
  11. ZAROXOLYN [Concomitant]
     Active Substance: METOLAZONE
     Dosage: STRENGTH: 5 MG

REACTIONS (4)
  - Completed suicide [Fatal]
  - Confusional state [Fatal]
  - Drug abuse [Unknown]
  - Hyperinsulinaemic hypoglycaemia [Fatal]

NARRATIVE: CASE EVENT DATE: 20170107
